FAERS Safety Report 5464720-2 (Version None)
Quarter: 2007Q3

REPORT INFORMATION
  Report Type: 
  Country: None (occurrence: None)
  Receive Date: 20070820
  Receipt Date: 20070712
  Transmission Date: 20080115
  Serious: No
  Sender: FDA-Public Use
  Company Number: TPA2007A00250

PATIENT
  Age: 49 Year
  Sex: Female

DRUGS (2)
  1. ROZEREM [Suspect]
     Indication: INSOMNIA
     Dosage: 8 MG, HS, PER ORAL, 8 MG, HS, PER ORAL
     Route: 048
  2. LIPITOR [Concomitant]

REACTIONS (1)
  - MENORRHAGIA [None]
